FAERS Safety Report 18756216 (Version 1)
Quarter: 2021Q1

REPORT INFORMATION
  Report Type: Report from Study
  Country: PL (occurrence: PL)
  Receive Date: 20210119
  Receipt Date: 20210119
  Transmission Date: 20210419
  Serious: Yes (Other)
  Sender: FDA-Public Use
  Company Number: PL-PFIZER INC-2021034092

PATIENT
  Age: 219 Month
  Sex: Male

DRUGS (3)
  1. ETOPOSIDE. [Suspect]
     Active Substance: ETOPOSIDE
     Indication: GERM CELL CANCER METASTATIC
     Dosage: 1800 MG/M2, ON DAYS ?5
  2. MELPHALAN. [Suspect]
     Active Substance: MELPHALAN
     Indication: GERM CELL CANCER METASTATIC
     Dosage: 140 MG/M2, ON DAY ?6
  3. CARBOPLATIN. [Suspect]
     Active Substance: CARBOPLATIN
     Indication: GERM CELL CANCER METASTATIC
     Dosage: 500 MG/M2, DAILY,  DAYS ?4 TO ?2

REACTIONS (9)
  - Mucosal inflammation [Unknown]
  - Acute kidney injury [Unknown]
  - Pyrexia [Unknown]
  - Hypertransaminasaemia [Unknown]
  - Neutropenia [Unknown]
  - Bacteraemia [Unknown]
  - Leukopenia [Unknown]
  - Hyperkalaemia [Unknown]
  - Hyponatraemia [Unknown]
